FAERS Safety Report 18867101 (Version 2)
Quarter: 2021Q4

REPORT INFORMATION
  Report Type: Spontaneous
  Country: US (occurrence: US)
  Receive Date: 20210209
  Receipt Date: 20211022
  Transmission Date: 20220304
  Serious: Yes (Hospitalization, Other)
  Sender: FDA-Public Use
  Company Number: US-LEADINGPHARMA-US-2021LEALIT00040

PATIENT
  Age: 29 Year
  Sex: Female

DRUGS (3)
  1. NIFEDIPINE [Suspect]
     Active Substance: NIFEDIPINE
     Indication: Product used for unknown indication
     Route: 065
  2. MAGNESIUM SULFATE [Suspect]
     Active Substance: MAGNESIUM SULFATE
     Indication: Eclampsia
     Route: 017
  3. LABETALOL [Concomitant]
     Active Substance: LABETALOL\LABETALOL HYDROCHLORIDE
     Indication: Product used for unknown indication

REACTIONS (16)
  - Renal failure [Unknown]
  - Cardiotoxicity [Unknown]
  - Dyspnoea [Unknown]
  - Abdominal pain [Unknown]
  - Hypomagnesaemia [Unknown]
  - Hyperreflexia [Unknown]
  - Hypopnoea [Unknown]
  - Bradycardia [Unknown]
  - Hypotension [Unknown]
  - Urine output decreased [Unknown]
  - Muscular weakness [Unknown]
  - Lethargy [Unknown]
  - Dizziness [Unknown]
  - Flushing [Unknown]
  - Abdominal distension [Unknown]
  - Drug interaction [Unknown]
